FAERS Safety Report 25842840 (Version 1)
Quarter: 2025Q3

REPORT INFORMATION
  Report Type: Report from Study
  Country: RU (occurrence: RU)
  Receive Date: 20250924
  Receipt Date: 20250924
  Transmission Date: 20251021
  Serious: Yes (Life-Threatening, Disabling, Other)
  Sender: ORGANON
  Company Number: RU-ORGANON-O2509RUS001862

PATIENT
  Sex: Female

DRUGS (1)
  1. ETONOGESTREL [Suspect]
     Active Substance: ETONOGESTREL
     Route: 059

REACTIONS (2)
  - Implant site necrosis [Unknown]
  - Device implantation error [Unknown]
